FAERS Safety Report 4495215-0 (Version None)
Quarter: 2004Q4

REPORT INFORMATION
  Report Type: 
  Country: None (occurrence: None)
  Receive Date: 20041108
  Receipt Date: 20041020
  Transmission Date: 20050328
  Serious: Yes (Death, Hospitalization)
  Sender: FDA-Public Use
  Company Number: 200413251JP

PATIENT
  Age: 41 Year
  Sex: Female
  Weight: 58.5 kg

DRUGS (4)
  1. ARAVA [Suspect]
     Indication: RHEUMATOID ARTHRITIS
     Route: 048
     Dates: start: 20040607, end: 20041009
  2. PREDONINE [Concomitant]
     Route: 048
  3. GASTER [Concomitant]
     Route: 048
  4. ROCALTROL [Concomitant]

REACTIONS (13)
  - BLOOD PRESSURE DECREASED [None]
  - CONVULSION [None]
  - HEADACHE [None]
  - HYPERVENTILATION [None]
  - HYPOAESTHESIA [None]
  - INSOMNIA [None]
  - IRRITABILITY [None]
  - LOSS OF CONSCIOUSNESS [None]
  - MALAISE [None]
  - NAUSEA [None]
  - PRURITUS [None]
  - SUBARACHNOID HAEMORRHAGE [None]
  - VOMITING [None]
